FAERS Safety Report 8325030-9 (Version None)
Quarter: 2012Q2

REPORT INFORMATION
  Report Type: 
  Country: None (occurrence: None)
  Receive Date: 20120501
  Receipt Date: 20100419
  Transmission Date: 20120825
  Serious: No
  Sender: FDA-Public Use
  Company Number: US-TEVA-2010001533

PATIENT
  Sex: Male
  Weight: 124.85 kg

DRUGS (4)
  1. NUVIGIL [Suspect]
     Indication: ATTENTION DEFICIT/HYPERACTIVITY DISORDER
  2. NUVIGIL [Suspect]
     Indication: NARCOLEPSY
     Dosage: 150 MILLIGRAM;
     Route: 048
     Dates: start: 20100212, end: 20100214
  3. TRAMADOL HCL [Concomitant]
     Indication: ARTHRITIS
     Dosage: 200 MILLIGRAM;
  4. MIRAPEX [Concomitant]
     Indication: RESTLESS LEGS SYNDROME
     Dosage: 1 MILLIGRAM;

REACTIONS (4)
  - HEADACHE [None]
  - NOCTURNAL DYSPNOEA [None]
  - MIDDLE INSOMNIA [None]
  - DISTURBANCE IN ATTENTION [None]
